FAERS Safety Report 6960805-X (Version None)
Quarter: 2010Q3

REPORT INFORMATION
  Report Type: 
  Country: None (occurrence: None)
  Receive Date: 20100901
  Receipt Date: 20100820
  Transmission Date: 20110219
  Serious: Yes (Hospitalization, Other)
  Sender: FDA-Public Use
  Company Number: US-PFIZER INC-2010100077

PATIENT
  Sex: Male
  Weight: 126.8 kg

DRUGS (16)
  1. LYRICA [Suspect]
     Indication: FIBROMYALGIA
     Dosage: 75 MG, 2X/DAY
     Route: 048
     Dates: start: 20090101, end: 20090101
  2. LYRICA [Suspect]
     Indication: DIABETIC NEUROPATHY
     Dosage: 75 MG, 3X/DAY
     Route: 048
     Dates: start: 20090101, end: 20090101
  3. LYRICA [Suspect]
     Dosage: 300 MG, 2X/DAY
     Route: 048
     Dates: start: 20090101
  4. CLONIDINE [Concomitant]
     Indication: HYPERTENSION
     Dosage: UNK
  5. AVAPRO [Concomitant]
     Indication: HYPERTENSION
     Dosage: UNK
  6. COREG [Concomitant]
     Indication: HYPERTENSION
     Dosage: 25 MG, UNK
  7. CRESTOR [Concomitant]
     Indication: BLOOD CHOLESTEROL INCREASED
     Dosage: 40 MG, UNK
  8. LANTUS [Concomitant]
     Indication: DIABETES MELLITUS
     Dosage: UNK, 2X/DAY
  9. INSULIN GLULISINE [Concomitant]
     Indication: DIABETES MELLITUS
     Dosage: UNK, 3X/DAY
  10. GLUCOPHAGE [Concomitant]
     Indication: DIABETES MELLITUS
     Dosage: UNK
  11. BACLOFEN [Concomitant]
     Indication: MUSCLE SPASMS
     Dosage: 1 MG, 2X/DAY
  12. TAMSULOSIN [Concomitant]
     Dosage: UNK
  13. METHADONE [Concomitant]
     Indication: PAIN
     Dosage: UNK
  14. CYMBALTA [Concomitant]
     Indication: DEPRESSION
     Dosage: UNK
  15. ASPIRIN [Concomitant]
     Dosage: UNK
  16. SEROQUEL [Concomitant]
     Indication: INSOMNIA
     Dosage: UNK

REACTIONS (5)
  - BLOOD TRIGLYCERIDES INCREASED [None]
  - DRUG INEFFECTIVE [None]
  - GLYCOSYLATED HAEMOGLOBIN INCREASED [None]
  - MYOCARDIAL INFARCTION [None]
  - WEIGHT INCREASED [None]
